FAERS Safety Report 21555076 (Version 3)
Quarter: 2023Q1

REPORT INFORMATION
  Report Type: Spontaneous
  Country: BE (occurrence: BE)
  Receive Date: 20221104
  Receipt Date: 20230118
  Transmission Date: 20230418
  Serious: Yes (Other)
  Sender: FDA-Public Use
  Company Number: BE-UCBSA-2022052229

PATIENT
  Age: 44 Year
  Sex: Female

DRUGS (5)
  1. ESCITALOPRAM [Suspect]
     Active Substance: ESCITALOPRAM OXALATE
     Indication: Product used for unknown indication
     Dosage: 10 MG, ONCE DAILY (QD)(MORNING)
     Route: 065
     Dates: start: 20210803, end: 20211013
  2. ESCITALOPRAM [Suspect]
     Active Substance: ESCITALOPRAM OXALATE
     Dosage: 20MG,QD(10MG, 2X/DAY(BID))
     Route: 065
     Dates: start: 20211014
  3. ATARAX [Suspect]
     Active Substance: HYDROXYZINE HYDROCHLORIDE
     Indication: Product used for unknown indication
     Dosage: 75MG,QD(25MG, 3X/DAY (TID))
     Route: 065
     Dates: start: 20210803
  4. MELATONIN [Concomitant]
     Active Substance: MELATONIN
     Indication: Product used for unknown indication
     Dosage: 2 MILLIGRAM, QD
     Route: 065
     Dates: start: 20210803, end: 20211103
  5. ABILIFY [Concomitant]
     Active Substance: ARIPIPRAZOLE
     Indication: Product used for unknown indication
     Dosage: QD (HALF TABLET IN THE EVENING)
     Route: 065
     Dates: start: 20211029

REACTIONS (3)
  - Disorientation [Not Recovered/Not Resolved]
  - Contraindicated product administered [Unknown]
  - Abnormal behaviour [Unknown]

NARRATIVE: CASE EVENT DATE: 20210803
